FAERS Safety Report 5205346-5 (Version None)
Quarter: 2007Q1

REPORT INFORMATION
  Report Type: 
  Country: None (occurrence: None)
  Receive Date: 20070108
  Receipt Date: 20061006
  Transmission Date: 20070707
  Serious: Yes (Other)
  Sender: FDA-Public Use
  Company Number: CHPA2006US10225

PATIENT
  Age: 36 Year
  Sex: Female
  Weight: 122.4 kg

DRUGS (4)
  1. NICOTINE [Suspect]
     Indication: SMOKING CESSATION THERAPY
     Dosage: 21 MG, QD, TRANSDERMAL
     Route: 062
     Dates: start: 20061006
  2. WELLBUTRIN [Concomitant]
  3. APAP W/CODEINE (CODEINE, PARACETAMOL) [Concomitant]
  4. PENICILLIN [Concomitant]

REACTIONS (3)
  - HEADACHE [None]
  - HOMICIDAL IDEATION [None]
  - IRRITABILITY [None]
